FAERS Safety Report 6810616-0 (Version None)
Quarter: 2010Q2

REPORT INFORMATION
  Report Type: 
  Country: None (occurrence: None)
  Receive Date: 20100630
  Receipt Date: 20100521
  Transmission Date: 20101027
  Serious: Yes (Death, Other)
  Sender: FDA-Public Use
  Company Number: PHHY2010JP22904

PATIENT
  Age: 81 Year
  Sex: Male

DRUGS (7)
  1. TASIGNA [Suspect]
     Indication: CHRONIC MYELOID LEUKAEMIA
     Dosage: 800 MG DAILY
     Route: 048
     Dates: start: 20100128, end: 20100304
  2. TAKEPRON [Concomitant]
     Dosage: 30 MG, UNK
     Route: 048
     Dates: start: 20091223, end: 20100329
  3. LASIX [Concomitant]
     Dosage: UNK
     Route: 048
     Dates: start: 20091127, end: 20100304
  4. NU-LOTAN [Concomitant]
     Dosage: 25 MG, UNK
     Route: 048
     Dates: start: 20050101, end: 20100301
  5. LUPRAC [Concomitant]
     Dosage: 4 MG, UNK
     Route: 048
     Dates: start: 20050101, end: 20100301
  6. LANIRAPID [Concomitant]
     Dosage: 0.05 MG, UNK
     Dates: end: 20100301
  7. WARFARIN SODIUM [Concomitant]
     Dosage: UNK
     Route: 048
     Dates: end: 20100301

REACTIONS (3)
  - CEREBROVASCULAR ACCIDENT [None]
  - PLEURAL EFFUSION [None]
  - RASH GENERALISED [None]
